FAERS Safety Report 4269864-9 (Version None)
Quarter: 2004Q1

REPORT INFORMATION
  Report Type: 
  Country: None (occurrence: None)
  Receive Date: 20040112
  Receipt Date: 20040112
  Transmission Date: 20041129
  Serious: Yes (Hospitalization)
  Sender: FDA-Public Use
  Company Number: None

PATIENT
  Age: 86 Year
  Sex: Male

DRUGS (6)
  1. HYDROCHLOROTHIAZIDE [Suspect]
     Indication: HYPERTENSION
     Dosage: 25 MG QD
     Dates: start: 20031114
  2. FLOMAX [Concomitant]
  3. METOPROLOL [Concomitant]
  4. CELECOXIB [Concomitant]
  5. SENNOSIDES [Concomitant]
  6. LISINOPRIL [Concomitant]

REACTIONS (1)
  - HYPONATRAEMIA [None]
